FAERS Safety Report 23273016 (Version 1)
Quarter: 2023Q4

REPORT INFORMATION
  Report Type: Spontaneous
  Country: US (occurrence: US)
  Receive Date: 20231207
  Receipt Date: 20231207
  Transmission Date: 20240109
  Serious: Yes (Hospitalization)
  Sender: FDA-Public Use
  Company Number: US-TEVA-VS-3134302

PATIENT
  Age: 70 Year

DRUGS (4)
  1. ACETAZOLAMIDE [Suspect]
     Active Substance: ACETAZOLAMIDE
     Indication: Retinal detachment
     Route: 048
  2. PREDNISONE [Suspect]
     Active Substance: PREDNISONE
     Indication: Retinal detachment
     Route: 048
  3. LATANOPROST [Concomitant]
     Active Substance: LATANOPROST
     Indication: Retinal detachment
     Route: 061
  4. DIFLUPREDNATE [Concomitant]
     Active Substance: DIFLUPREDNATE
     Indication: Retinal detachment
     Route: 061

REACTIONS (2)
  - Drug intolerance [Unknown]
  - Malaise [Unknown]
